FAERS Safety Report 5651845-1 (Version None)
Quarter: 2008Q1

REPORT INFORMATION
  Report Type: 
  Country: None (occurrence: None)
  Receive Date: 20080305
  Receipt Date: 20080227
  Transmission Date: 20080703
  Serious: Yes (Hospitalization, Other)
  Sender: FDA-Public Use
  Company Number: US-PFIZER INC-2005040008

PATIENT
  Sex: Female

DRUGS (18)
  1. SILDENAFIL CITRATE [Suspect]
     Indication: PULMONARY HYPERTENSION
     Route: 048
  2. FLOLAN [Interacting]
     Indication: PULMONARY HYPERTENSION
     Dosage: TEXT:24.8 NG/KG/MIN
     Route: 042
  3. POTASSIUM CHLORIDE [Concomitant]
     Route: 048
  4. LEVOTHYROXINE SODIUM [Concomitant]
     Route: 048
  5. BUPROPION HCL [Concomitant]
     Route: 048
  6. MAGNESIUM [Concomitant]
     Route: 048
  7. LASIX [Concomitant]
     Route: 048
  8. WARFARIN SODIUM [Concomitant]
     Route: 048
  9. LISINOPRIL [Concomitant]
     Route: 048
  10. DIGOXIN [Concomitant]
     Route: 048
  11. PANTOPRAZOLE [Concomitant]
     Route: 048
  12. GLIPIZIDE [Concomitant]
     Route: 048
  13. LOPRESSOR [Concomitant]
     Route: 048
  14. GOLD [Concomitant]
     Route: 048
  15. LIPITOR [Concomitant]
     Route: 048
  16. GEMFIBROZIL [Concomitant]
     Route: 048
  17. BECONASE [Concomitant]
     Route: 065
  18. OXYGEN [Concomitant]
     Route: 065

REACTIONS (3)
  - DRUG INTERACTION [None]
  - NAUSEA [None]
  - RASH [None]
